FAERS Safety Report 7598408 (Version 4)
Quarter: 2013Q2

REPORT INFORMATION
  Report Type: Spontaneous
  Country: US (occurrence: US)
  Receive Date: 20100920
  Receipt Date: 20130522
  Transmission Date: 20140414
  Serious: Yes (Other)
  Sender: FDA-Public Use
  Company Number: US-PFIZER INC-2010116211

PATIENT
  Age: 60 Year
  Sex: Female
  Weight: 63.49 kg

DRUGS (5)
  1. LIPITOR [Suspect]
     Indication: BLOOD CHOLESTEROL INCREASED
     Dosage: 5 MG, 1X/DAY
     Route: 048
     Dates: start: 2000, end: 20100910
  2. LIPITOR [Suspect]
     Dosage: 10 MG, 1X/DAY
     Dates: start: 2000
  3. DIOVAN HCT [Concomitant]
     Indication: BLOOD PRESSURE INCREASED
     Dosage: VALSARTAN 325 MG/ HYDROCHLOROTHIAZIDE 12.5 MG, DAILY
     Dates: start: 2000
  4. EFEXOR XR [Concomitant]
     Dosage: 75 MG, 1X/DAY
  5. NORVASC [Concomitant]
     Dosage: 10 MG, 1X/DAY

REACTIONS (4)
  - Hypoaesthesia [Recovering/Resolving]
  - Pain in extremity [Recovering/Resolving]
  - Surgery [Unknown]
  - Diabetes mellitus [Unknown]
